FAERS Safety Report 9432361 (Version 2)
Quarter: 2013Q3

REPORT INFORMATION
  Report Type: Spontaneous
  Country: US (occurrence: US)
  Receive Date: 20130731
  Receipt Date: 20130819
  Transmission Date: 20140515
  Serious: Yes (Other)
  Sender: FDA-Public Use
  Company Number: US-PFIZER INC-2013222501

PATIENT
  Age: 55 Year
  Sex: Female

DRUGS (9)
  1. ZOLOFT [Suspect]
     Dosage: 100 MG, 1X/DAY
     Route: 048
  2. ZOLOFT [Suspect]
     Dosage: 50 MG, 1X/DAY
     Route: 048
  3. NEURONTIN [Suspect]
     Dosage: 800 MG, 5X/DAY
  4. BUPROPION [Concomitant]
     Dosage: UNK
  5. MORPHINE [Concomitant]
     Dosage: UNK
  6. COPAXONE [Concomitant]
     Dosage: UNK
  7. MODAFINIL [Concomitant]
     Dosage: UNK
  8. NORTRIPTYLINE [Concomitant]
     Dosage: UNK
  9. VITAMIN D3 [Concomitant]
     Dosage: UNK

REACTIONS (3)
  - Pneumonia [Unknown]
  - Lung disorder [Unknown]
  - Incorrect dose administered [Unknown]
